FAERS Safety Report 7206670-7 (Version None)
Quarter: 2011Q1

REPORT INFORMATION
  Report Type: 
  Country: None (occurrence: None)
  Receive Date: 20110103
  Receipt Date: 20101229
  Transmission Date: 20110831
  Serious: Yes (Other)
  Sender: FDA-Public Use
  Company Number: US-PFIZER INC-2010181209

PATIENT
  Age: 31 Year
  Sex: Female

DRUGS (1)
  1. GEODON [Suspect]
     Indication: SCHIZOPHRENIA
     Dosage: 80 MG, AT DINNER WITH A MEAL
     Dates: start: 20091101

REACTIONS (2)
  - DYSTONIA [None]
  - DYSKINESIA [None]
